FAERS Safety Report 25912173 (Version 1)
Quarter: 2025Q4

REPORT INFORMATION
  Report Type: Spontaneous
  Country: US (occurrence: US)
  Receive Date: 20251013
  Receipt Date: 20251013
  Transmission Date: 20260119
  Serious: No
  Sender: ELI LILLY AND COMPANY
  Company Number: US-ELI_LILLY_AND_COMPANY-US202510006676

PATIENT
  Age: 71 Year
  Sex: Female

DRUGS (4)
  1. LYUMJEV KWIKPEN [Suspect]
     Active Substance: INSULIN LISPRO
     Indication: Diabetes mellitus
     Dosage: 10 U, TID (9-10 UNITS 3 TIMES PER DAY)
     Route: 065
     Dates: start: 20251001
  2. LYUMJEV KWIKPEN [Suspect]
     Active Substance: INSULIN LISPRO
     Indication: Diabetes mellitus
     Dosage: 10 U, TID (9-10 UNITS 3 TIMES PER DAY)
     Route: 065
     Dates: start: 20251001
  3. LYUMJEV KWIKPEN [Suspect]
     Active Substance: INSULIN LISPRO
     Dosage: UNK UNK, UNKNOWN (DOSE INCREASED)
     Route: 065
     Dates: end: 20251001
  4. LYUMJEV KWIKPEN [Suspect]
     Active Substance: INSULIN LISPRO
     Dosage: UNK UNK, UNKNOWN (DOSE INCREASED)
     Route: 065
     Dates: end: 20251001

REACTIONS (2)
  - Incorrect product administration duration [Unknown]
  - Blood glucose increased [Unknown]
